FAERS Safety Report 7771636-5 (Version None)
Quarter: 2011Q3

REPORT INFORMATION
  Report Type: 
  Country: None (occurrence: None)
  Receive Date: 20110922
  Receipt Date: 20100824
  Transmission Date: 20111222
  Serious: Yes (Hospitalization, Other)
  Sender: FDA-Public Use
  Company Number: US-ASTRAZENECA-2008UW01218

PATIENT
  Age: 589 Month
  Sex: Male
  Weight: 108.9 kg

DRUGS (15)
  1. SEROQUEL [Suspect]
     Indication: DEPRESSION
     Dosage: 300 MG - 800 MG
     Route: 048
     Dates: start: 20040224
  2. VISTARIL [Concomitant]
     Dosage: 25 MG - 200 MG
     Dates: start: 20051109
  3. SEROQUEL [Suspect]
     Indication: ANXIETY
     Dosage: 300 MG - 800 MG
     Route: 048
     Dates: start: 20040224
  4. VICODIN [Concomitant]
     Dates: start: 20080327
  5. REMERON [Concomitant]
     Indication: ANXIETY
     Dosage: 15 MG -45 MG
     Dates: start: 20040922
  6. MOTRIN [Concomitant]
     Dosage: 600 MG - 800 MG
     Dates: start: 20050127
  7. SEROQUEL [Suspect]
     Route: 048
     Dates: start: 20040501
  8. TYLENOL-500 [Concomitant]
     Dosage: 325 MG - 650 MG
     Dates: start: 20051121
  9. MIRTAZAPINE [Concomitant]
     Dates: start: 20060105
  10. SEROQUEL [Suspect]
     Route: 048
     Dates: start: 20060201
  11. SEROQUEL [Suspect]
     Route: 048
     Dates: start: 20040501
  12. SEROQUEL [Suspect]
     Route: 048
     Dates: start: 20060201
  13. REMERON [Concomitant]
     Indication: DEPRESSION
     Dosage: 15 MG -45 MG
     Dates: start: 20040922
  14. SEROQUEL [Suspect]
     Route: 048
     Dates: start: 20041001
  15. SEROQUEL [Suspect]
     Route: 048
     Dates: start: 20041001

REACTIONS (8)
  - DIABETIC KETOACIDOSIS [None]
  - DIABETIC COMA [None]
  - DIABETES MELLITUS [None]
  - OBESITY [None]
  - TYPE 2 DIABETES MELLITUS [None]
  - HYPERGLYCAEMIA [None]
  - DIABETIC COMPLICATION [None]
  - GLYCOSURIA [None]
